FAERS Safety Report 19349732 (Version 1)
Quarter: 2021Q2

REPORT INFORMATION
  Report Type: Spontaneous
  Country: US (occurrence: US)
  Receive Date: 20210530
  Receipt Date: 20210530
  Transmission Date: 20210717
  Serious: Yes (Death)
  Sender: FDA-Public Use
  Company Number: None

PATIENT
  Age: 78 Year
  Sex: Male
  Weight: 66.9 kg

DRUGS (6)
  1. CLONAZEPAM. [Suspect]
     Active Substance: CLONAZEPAM
  2. TEMOZOLOMIDE 20 MG [Suspect]
     Active Substance: TEMOZOLOMIDE
     Indication: GLIOBLASTOMA MULTIFORME
     Dosage: ?          OTHER FREQUENCY:QD DAY 1?14;?
     Route: 048
     Dates: start: 202003, end: 202102
  3. SENNA [Suspect]
     Active Substance: SENNA LEAF\SENNOSIDES\SENNOSIDES A AND B
  4. LEVETIRACETAM. [Suspect]
     Active Substance: LEVETIRACETAM
  5. DEXAMETHASONE. [Suspect]
     Active Substance: DEXAMETHASONE
  6. HYDROCHLOROTHIAZIDE. [Suspect]
     Active Substance: HYDROCHLOROTHIAZIDE

REACTIONS (1)
  - Death [None]
